FAERS Safety Report 10224047 (Version 1)
Quarter: 2014Q2

REPORT INFORMATION
  Report Type: Spontaneous
  Country: ID (occurrence: ID)
  Receive Date: 20140609
  Receipt Date: 20140609
  Transmission Date: 20141212
  Serious: Yes (Death)
  Sender: FDA-Public Use
  Company Number: ID-ASTRAZENECA-2014SE39202

PATIENT
  Age: 4 Year
  Sex: Female

DRUGS (1)
  1. NAROPIN [Suspect]
     Indication: POSTOPERATIVE ANALGESIA
     Dosage: 7.5 MG/ML
     Route: 065

REACTIONS (6)
  - Sensory loss [Fatal]
  - Ischaemia [Fatal]
  - Haematoma [Fatal]
  - Hypokinesia [Fatal]
  - Anuria [Fatal]
  - Apnoea [Fatal]
